FAERS Safety Report 6807245-1 (Version None)
Quarter: 2010Q2

REPORT INFORMATION
  Report Type: 
  Country: None (occurrence: None)
  Receive Date: 20100629
  Receipt Date: 20080805
  Transmission Date: 20101027
  Serious: No
  Sender: FDA-Public Use
  Company Number: US-PFIZER INC-2008064800

PATIENT
  Sex: Male
  Weight: 95.454 kg

DRUGS (13)
  1. VIAGRA [Suspect]
     Indication: ERECTILE DYSFUNCTION
     Dates: start: 20080101, end: 20080101
  2. AMLODIPINE BESYLATE/VALSARTAN [Concomitant]
  3. ACETYLSALICYLIC ACID [Concomitant]
  4. NEXIUM [Concomitant]
  5. DETROL LA [Concomitant]
  6. FUROSEMIDE [Concomitant]
  7. LEVOXYL [Concomitant]
  8. LEXAPRO [Concomitant]
  9. LIPITOR [Concomitant]
  10. POTASSIUM [Concomitant]
  11. MONTELUKAST SODIUM [Concomitant]
  12. ALL OTHER THERAPEUTIC PRODUCTS [Concomitant]
  13. KLONOPIN [Concomitant]

REACTIONS (1)
  - DRUG EFFECT DECREASED [None]
